FAERS Safety Report 7677677-0 (Version None)
Quarter: 2011Q3

REPORT INFORMATION
  Report Type: 
  Country: None (occurrence: None)
  Receive Date: 20110811
  Receipt Date: 20110729
  Transmission Date: 20111222
  Serious: Yes (Other)
  Sender: FDA-Public Use
  Company Number: PHHY2009JP50940

PATIENT
  Age: 10 Year
  Sex: Male

DRUGS (5)
  1. SANDIMMUNE [Suspect]
     Indication: BONE MARROW TRANSPLANT
     Dosage: UNK UKN, UNK
     Route: 041
     Dates: start: 20020101
  2. BUSULFAN [Concomitant]
     Indication: BONE MARROW TRANSPLANT
     Dosage: UNK UKN, UNK
  3. SANDIMMUNE [Suspect]
     Dosage: UNK UKN, UNK
     Dates: start: 20030904, end: 20030904
  4. NEORAL [Suspect]
     Indication: GRAFT VERSUS HOST DISEASE
     Dosage: UNK UKN, UNK
     Route: 048
     Dates: start: 20020901
  5. CYCLOPHOSPHAMIDE [Concomitant]
     Indication: BONE MARROW TRANSPLANT
     Dosage: UNK UKN, UNK
     Dates: start: 20030401

REACTIONS (20)
  - ANAPHYLACTIC SHOCK [None]
  - WHITE BLOOD CELL COUNT DECREASED [None]
  - EOSINOPHIL COUNT INCREASED [None]
  - PYREXIA [None]
  - RESPIRATORY DISORDER [None]
  - BLOOD IMMUNOGLOBULIN E ABNORMAL [None]
  - MALAISE [None]
  - BLOOD PRESSURE DECREASED [None]
  - GRAFT VERSUS HOST DISEASE [None]
  - URTICARIA [None]
  - DRUG ERUPTION [None]
  - OXYGEN SATURATION DECREASED [None]
  - RASH [None]
  - ANAPHYLACTIC REACTION [None]
  - SEPSIS [None]
  - DYSPNOEA [None]
  - NAUSEA [None]
  - DIARRHOEA [None]
  - HYPERSENSITIVITY [None]
  - NEUTROPHIL COUNT INCREASED [None]
